FAERS Safety Report 5364318-0 (Version None)
Quarter: 2007Q2

REPORT INFORMATION
  Report Type: 
  Country: None (occurrence: None)
  Receive Date: 20070620
  Receipt Date: 20070614
  Transmission Date: 20071010
  Serious: Yes (Hospitalization, Other)
  Sender: FDA-Public Use
  Company Number: JP-MERCK-0705USA05121

PATIENT
  Age: 32 Year
  Sex: Male

DRUGS (12)
  1. PROPECIA [Suspect]
     Indication: MALE PATTERN BALDNESS
     Route: 048
     Dates: start: 20061012, end: 20070517
  2. TOLEDOMIN [Concomitant]
     Route: 048
  3. RIVOTRIL [Concomitant]
     Indication: DEPRESSION
     Route: 048
  4. LEXOTAN [Concomitant]
     Indication: DEPRESSION
     Route: 048
  5. PAXIL [Concomitant]
     Indication: DEPRESSION
     Route: 048
  6. HALCION [Concomitant]
     Indication: DEPRESSION
     Route: 048
  7. FLUNITRAZEPAM [Concomitant]
     Indication: DEPRESSION
     Route: 048
  8. MEILAX [Concomitant]
     Indication: DEPRESSION
     Route: 048
  9. SOLON [Concomitant]
     Indication: PROPHYLAXIS AGAINST GASTROINTESTINAL ULCER
     Route: 048
  10. AMOXAPINE [Concomitant]
     Indication: DEPRESSION
     Route: 065
     Dates: end: 20070519
  11. MIRADOL [Concomitant]
     Route: 048
     Dates: end: 20070519
  12. FUROZIN [Concomitant]
     Indication: ALOPECIA
     Route: 061
     Dates: start: 20061107

REACTIONS (2)
  - HEPATIC FUNCTION ABNORMAL [None]
  - PYREXIA [None]
